FAERS Safety Report 7065187-3 (Version None)
Quarter: 2010Q4

REPORT INFORMATION
  Report Type: 
  Country: None (occurrence: None)
  Receive Date: 20101019
  Receipt Date: 20101008
  Transmission Date: 20110411
  Serious: Yes (Other)
  Sender: FDA-Public Use
  Company Number: DSA_44066_2010

PATIENT
  Sex: Male

DRUGS (2)
  1. XENAZINE [Suspect]
     Indication: BASAL GANGLION DEGENERATION
     Dosage: (ONE AND ONE HALF OF A 12.5 MG TABLET IN THE MORNING AND ONE 12.5 MG TABLET IN THE EVENING)
     Dates: start: 20100101
  2. XENAZINE [Suspect]
     Indication: HUNTINGTON'S DISEASE
     Dosage: (ONE AND ONE HALF OF A 12.5 MG TABLET IN THE MORNING AND ONE 12.5 MG TABLET IN THE EVENING)
     Dates: start: 20100101

REACTIONS (2)
  - AGITATION [None]
  - TONGUE INJURY [None]
